FAERS Safety Report 20359467 (Version 1)
Quarter: 2022Q1

REPORT INFORMATION
  Report Type: Spontaneous
  Country: ES (occurrence: ES)
  Receive Date: 20220121
  Receipt Date: 20220121
  Transmission Date: 20220424
  Serious: No
  Sender: FDA-Public Use
  Company Number: ES-LESVI-2021076930

PATIENT
  Age: 78 Year
  Sex: Female

DRUGS (13)
  1. LORAZEPAM [Suspect]
     Active Substance: LORAZEPAM
     Indication: Anxiety
     Dosage: 0.5 DOSAGE FORM (1 MG)
     Route: 065
     Dates: start: 2003
  2. LORAZEPAM [Suspect]
     Active Substance: LORAZEPAM
     Dosage: 1 DOSAGE FORM (0.5 MG)
     Route: 065
  3. TELMISARTAN [Suspect]
     Active Substance: TELMISARTAN
     Indication: Hypertension
     Dosage: 1 DOSAGE FORM, QD
     Route: 065
     Dates: start: 2011
  4. OMEPRAZOLE [Suspect]
     Active Substance: OMEPRAZOLE
     Indication: Gastric disorder
     Dosage: 1 DOSAGE FORM, QD (20MG)
     Route: 065
     Dates: start: 2005
  5. INSULIN NOS [Concomitant]
     Active Substance: INSULIN NOS
     Indication: Type 2 diabetes mellitus
     Dosage: 1 DOSAGE FORM, QD
     Route: 065
     Dates: start: 2003
  6. TRAVOPROSTQUEEN COMB [Concomitant]
     Indication: Glaucoma
     Dosage: 2 DOSAGE FORM, QD
     Route: 065
     Dates: start: 2009
  7. RISEDRONIC ACID [Concomitant]
     Active Substance: RISEDRONIC ACID
     Indication: Osteoporosis
     Dosage: 1 DOSAGE WEEKLY
     Route: 065
     Dates: start: 2006
  8. BILASTINE [Concomitant]
     Active Substance: BILASTINE
     Indication: Pruritus
     Dosage: 1 DOSAGE FORM, QD
     Route: 065
     Dates: start: 2011
  9. METFORMIN [Concomitant]
     Active Substance: METFORMIN HYDROCHLORIDE
     Indication: Type 2 diabetes mellitus
     Dosage: 2 DOSAGE FORM, QD
     Route: 065
     Dates: start: 2007
  10. CALCIUM\CHOLECALCIFEROL [Concomitant]
     Active Substance: CALCIUM\CHOLECALCIFEROL
     Indication: Osteoporosis
     Dosage: 1 DOSAGE FORM, QD
     Route: 065
     Dates: start: 2006
  11. SIMVASTATIN [Concomitant]
     Active Substance: SIMVASTATIN
     Indication: Prophylaxis
     Dosage: 1 DOSAGE FORM, QD (20 MG)
     Route: 065
     Dates: start: 2003
  12. MIRTAZAPINE [Concomitant]
     Active Substance: MIRTAZAPINE
     Indication: Anxiety
     Dosage: 1 DOSAGE FORM, QD (15 MG)
     Route: 065
     Dates: start: 2015
  13. ACETAMINOPHEN [Concomitant]
     Active Substance: ACETAMINOPHEN
     Indication: Osteoarthritis
     Dosage: 1 DOSAGE FORM, PRN (650 MG)
     Route: 065
     Dates: start: 2004

REACTIONS (4)
  - Weight decreased [Recovered/Resolved]
  - Urge incontinence [Recovered/Resolved]
  - Diarrhoea [Recovered/Resolved]
  - Abdominal pain [Recovered/Resolved]
